FAERS Safety Report 7817904-X (Version None)
Quarter: 2011Q4

REPORT INFORMATION
  Report Type: 
  Country: None (occurrence: None)
  Receive Date: 20111017
  Receipt Date: 20111004
  Transmission Date: 20120403
  Serious: Yes (Other)
  Sender: FDA-Public Use
  Company Number: PHHY2011BR88356

PATIENT
  Age: 67 Year
  Sex: Male
  Weight: 90 kg

DRUGS (5)
  1. SPIRONOLACTONE [Suspect]
  2. AMLODIPINE [Suspect]
     Dosage: 5 MG, PER DAY
  3. ALLOPURINOL [Suspect]
     Dosage: 100 MG, PER DAY
  4. SOTALOL HCL [Suspect]
     Dosage: 80 MG, PER DAY
  5. DIOVAN [Suspect]
     Dosage: 160 MG, DAILY
     Dates: start: 20110301

REACTIONS (7)
  - BLOOD PRESSURE INCREASED [None]
  - GYNAECOMASTIA [None]
  - BLOOD GLUCOSE INCREASED [None]
  - BLOOD POTASSIUM DECREASED [None]
  - BLOOD UREA INCREASED [None]
  - LEFT VENTRICULAR FAILURE [None]
  - DIASTOLIC DYSFUNCTION [None]
